FAERS Safety Report 5513577-X (Version None)
Quarter: 2007Q4

REPORT INFORMATION
  Report Type: 
  Country: None (occurrence: None)
  Receive Date: 20071112
  Receipt Date: 20071108
  Transmission Date: 20080405
  Serious: Yes (Hospitalization)
  Sender: FDA-Public Use
  Company Number: US-ROXANE LABORATORIES, INC-2007-BP-24192RO

PATIENT
  Age: 40 Year
  Sex: Female

DRUGS (1)
  1. SODIUM POLYSTYRENE SULFONATE [Suspect]
     Indication: BLOOD POTASSIUM INCREASED
     Route: 048
     Dates: start: 20071107, end: 20071108

REACTIONS (1)
  - LABORATORY TEST ABNORMAL [None]
